FAERS Safety Report 9222752 (Version 1)
Quarter: 2013Q1

REPORT INFORMATION
  Report Type: Spontaneous
  Country: US (occurrence: None)
  Receive Date: 20120914
  Receipt Date: 20120914
  Transmission Date: 20140127
  Serious: Yes (Other)
  Sender: FDA-Public Use
  Company Number: JPI-P-018690

PATIENT
  Age: 25 Year
  Sex: Female

DRUGS (1)
  1. XYREM (500 MILLIGRAM/MILLILITERS, SOLUTION) (SODIUM OXYBATE) [Suspect]
     Indication: CATAPLEXY
     Dosage: HAS BEEN ON AND OFF XYREM SINCE STARTING
     Route: 048
     Dates: start: 20070907

REACTIONS (8)
  - Monarthritis [None]
  - Arthralgia [None]
  - Arthralgia [None]
  - Patella fracture [None]
  - Road traffic accident [None]
  - Road traffic accident [None]
  - Enuresis [None]
  - Condition aggravated [None]
